FAERS Safety Report 4347050-1 (Version None)
Quarter: 2004Q2

REPORT INFORMATION
  Report Type: 
  Country: None (occurrence: None)
  Receive Date: 20040426
  Receipt Date: 20000830
  Transmission Date: 20050107
  Serious: Yes (Disabling, Other)
  Sender: FDA-Public Use
  Company Number: US-GLAXOSMITHKLINE-A0127120A

PATIENT
  Age: 41 Year
  Sex: Female
  Weight: 78.6 kg

DRUGS (3)
  1. FLONASE [Suspect]
     Dosage: 2SPR TWICE PER DAY
     Route: 045
     Dates: start: 19970101, end: 20000101
  2. ALLEGRA [Concomitant]
     Dosage: 60MG TWICE PER DAY
     Dates: start: 19970101
  3. ATROVENT AQUEOUS NASAL [Concomitant]
     Route: 045

REACTIONS (5)
  - CATARACT [None]
  - EYE DISCHARGE [None]
  - FUNGAL INFECTION [None]
  - KERATOCONJUNCTIVITIS SICCA [None]
  - VISION BLURRED [None]
